FAERS Safety Report 8575984-0 (Version None)
Quarter: 2012Q3

REPORT INFORMATION
  Report Type: 
  Country: None (occurrence: None)
  Receive Date: 20120807
  Receipt Date: 20120106
  Transmission Date: 20120928
  Serious: Yes (Death)
  Sender: FDA-Public Use
  Company Number: DE-CELGENEUS-062-21660-12061147

PATIENT
  Sex: Female

DRUGS (4)
  1. ABRAXANE [Suspect]
     Route: 065
     Dates: start: 20110823, end: 20110823
  2. IBANDRONIC ACID [Concomitant]
     Route: 065
     Dates: start: 20110201
  3. DEXAMETHASONE [Concomitant]
     Route: 065
  4. GRANISETRON [Concomitant]
     Route: 048

REACTIONS (1)
  - GENERAL PHYSICAL HEALTH DETERIORATION [None]
